FAERS Safety Report 23663045 (Version 7)
Quarter: 2024Q2

REPORT INFORMATION
  Report Type: Spontaneous
  Country: UY (occurrence: UY)
  Receive Date: 20240322
  Receipt Date: 20240603
  Transmission Date: 20240715
  Serious: No
  Sender: FDA-Public Use
  Company Number: UY-PFIZER INC-PV202400028842

PATIENT
  Age: 9 Year
  Sex: Male

DRUGS (1)
  1. GENOTROPIN [Suspect]
     Active Substance: SOMATROPIN
     Indication: Growth hormone deficiency
     Dosage: 0.1 TO 0.5 MG, 7X PER WEEK
     Dates: start: 20190728

REACTIONS (5)
  - Device difficult to use [Unknown]
  - Device malfunction [Unknown]
  - Device mechanical issue [Unknown]
  - Device information output issue [Unknown]
  - Poor quality device used [Unknown]
